FAERS Safety Report 4943878-5 (Version None)
Quarter: 2006Q1

REPORT INFORMATION
  Report Type: 
  Country: None (occurrence: None)
  Receive Date: 20060310
  Receipt Date: 20051104
  Transmission Date: 20060701
  Serious: Yes (Hospitalization, Other)
  Sender: FDA-Public Use
  Company Number: 2006022184

PATIENT
  Age: 53 Year
  Sex: Male
  Weight: 113.3993 kg

DRUGS (7)
  1. BEXTRA [Suspect]
     Indication: OSTEOARTHRITIS
     Dosage: 20 MG (20 MG, 1 IN 1 D)
     Dates: start: 20030527, end: 20050101
  2. PREDNISONE [Concomitant]
  3. FUROSEMIDE [Concomitant]
  4. TOPROL-XL [Concomitant]
  5. CALAN [Concomitant]
  6. ASPIRIN [Concomitant]
  7. ATACAND [Concomitant]

REACTIONS (37)
  - AORTIC VALVE CALCIFICATION [None]
  - AORTIC VALVE INCOMPETENCE [None]
  - ARTHROPATHY [None]
  - ATRIAL HYPERTROPHY [None]
  - BACTERAEMIA [None]
  - BLISTER [None]
  - BLOOD URIC ACID INCREASED [None]
  - BRONCHOSPASM [None]
  - CALCIUM IONISED INCREASED [None]
  - CELLULITIS STREPTOCOCCAL [None]
  - CHEST DISCOMFORT [None]
  - CHONDROCALCINOSIS PYROPHOSPHATE [None]
  - DILATATION VENTRICULAR [None]
  - ECCHYMOSIS [None]
  - ELECTROCARDIOGRAM ST SEGMENT ABNORMAL [None]
  - HAEMOGLOBIN INCREASED [None]
  - HEPATIC STEATOSIS [None]
  - HYPERHIDROSIS [None]
  - HYPERPARATHYROIDISM [None]
  - HYPERTENSION [None]
  - HYPERURICAEMIA [None]
  - INSOMNIA [None]
  - JOINT EFFUSION [None]
  - KNEE DEFORMITY [None]
  - LEUKOCYTOSIS [None]
  - MITRAL VALVE INCOMPETENCE [None]
  - MYOCARDIAL ISCHAEMIA [None]
  - NAUSEA [None]
  - OBESITY [None]
  - OSTEOARTHRITIS [None]
  - POLYCYTHAEMIA [None]
  - REFUSAL OF TREATMENT BY PATIENT [None]
  - SLEEP APNOEA SYNDROME [None]
  - STEVENS-JOHNSON SYNDROME [None]
  - SUPRAVENTRICULAR TACHYCARDIA [None]
  - TENOSYNOVITIS [None]
  - VENTRICULAR HYPERTROPHY [None]
